FAERS Safety Report 4882530-1 (Version None)
Quarter: 2006Q1

REPORT INFORMATION
  Report Type: 
  Country: None (occurrence: None)
  Receive Date: 20060113
  Receipt Date: 20060106
  Transmission Date: 20060701
  Serious: Yes (Other)
  Sender: FDA-Public Use
  Company Number: 2006003465

PATIENT
  Age: 2 Year
  Sex: Female
  Weight: 16.7831 kg

DRUGS (1)
  1. INFANTS' PEDIACARE LONG-ACTING COUGH (DEXTROMETHORPHAN) [Suspect]
     Dosage: 1/2 BOTTLE ONCE, ORAL
     Route: 048
     Dates: start: 20060106, end: 20060106

REACTIONS (3)
  - ACCIDENTAL DRUG INTAKE BY CHILD [None]
  - ACCIDENTAL OVERDOSE [None]
  - IRRITABILITY [None]
